FAERS Safety Report 8104799-2 (Version None)
Quarter: 2012Q1

REPORT INFORMATION
  Report Type: 
  Country: None (occurrence: None)
  Receive Date: 20120130
  Receipt Date: 20120123
  Transmission Date: 20120608
  Serious: Yes (Other)
  Sender: FDA-Public Use
  Company Number: AU-PFIZER INC-2011296703

PATIENT
  Age: 28 Year
  Sex: Female

DRUGS (1)
  1. DEPO-PROVERA [Suspect]
     Indication: CONTRACEPTION
     Dosage: 150 MG, SINGLE INJECTION RECEIVED
     Route: 030
     Dates: start: 20110207, end: 20110207

REACTIONS (14)
  - PHARYNGEAL ERYTHEMA [None]
  - DEPRESSION SUICIDAL [None]
  - FATIGUE [None]
  - FEELING OF BODY TEMPERATURE CHANGE [None]
  - IMPAIRED WORK ABILITY [None]
  - DIZZINESS [None]
  - VOMITING [None]
  - EMOTIONAL DISTRESS [None]
  - DISTURBANCE IN ATTENTION [None]
  - NAUSEA [None]
  - COLD SWEAT [None]
  - RETCHING [None]
  - HYPERHIDROSIS [None]
  - DRY MOUTH [None]
